FAERS Safety Report 5321180-X (Version None)
Quarter: 2007Q1

REPORT INFORMATION
  Report Type: 
  Country: None (occurrence: None)
  Receive Date: 20070215
  Receipt Date: 20060418
  Transmission Date: 20070707
  Serious: No
  Sender: FDA-Public Use
  Company Number: 200612456BWH

PATIENT
  Age: 53 Year
  Sex: Male

DRUGS (3)
  1. NEXAVAR [Suspect]
     Indication: RENAL CELL CARCINOMA STAGE UNSPECIFIED
     Dosage: 400 MG, BID, ORAL
     Route: 048
     Dates: start: 20060406
  2. BENADRYL [Concomitant]
  3. VICODIN [Concomitant]

REACTIONS (2)
  - RASH GENERALISED [None]
  - SKIN BURNING SENSATION [None]
